FAERS Safety Report 25798520 (Version 2)
Quarter: 2025Q4

REPORT INFORMATION
  Report Type: Report from Study
  Country: US (occurrence: US)
  Receive Date: 20250913
  Receipt Date: 20251002
  Transmission Date: 20260117
  Serious: Yes (Hospitalization, Other)
  Sender: ABBVIE
  Company Number: US-ABBVIE-6457021

PATIENT
  Age: 53 Year
  Sex: Male
  Weight: 86.182 kg

DRUGS (7)
  1. HUMIRA [Suspect]
     Active Substance: ADALIMUMAB
     Indication: Arthritis
     Dosage: FORM STRENGTH: 40 MILLIGRAM
     Route: 058
     Dates: start: 2015
  2. HUMIRA [Suspect]
     Active Substance: ADALIMUMAB
     Route: 058
     Dates: start: 2021, end: 2023
  3. HUMIRA [Suspect]
     Active Substance: ADALIMUMAB
     Route: 058
     Dates: start: 20250725
  4. HUMIRA [Suspect]
     Active Substance: ADALIMUMAB
     Dosage: DRUG STOP DATE: 2025
     Route: 058
     Dates: start: 202506
  5. AMLODIPINE [Concomitant]
     Active Substance: AMLODIPINE BESYLATE
     Indication: Blood pressure abnormal
  6. GABAPENTIN [Concomitant]
     Active Substance: GABAPENTIN
     Indication: Arthritis
     Dosage: FORM STRENGTH: 300 MILLIGRAM
  7. ATENOLOL [Concomitant]
     Active Substance: ATENOLOL
     Indication: Heart rate abnormal

REACTIONS (4)
  - Arthritis [Recovered/Resolved]
  - Gait inability [Recovered/Resolved]
  - Injection site haemorrhage [Recovered/Resolved]
  - Device issue [Not Recovered/Not Resolved]

NARRATIVE: CASE EVENT DATE: 20150101
